FAERS Safety Report 9959173 (Version 2)
Quarter: 2014Q1

REPORT INFORMATION
  Report Type: Report from Study
  Country: US (occurrence: US)
  Receive Date: 20140305
  Receipt Date: 20140305
  Transmission Date: 20141002
  Serious: No
  Sender: FDA-Public Use
  Company Number: US-ABBVIE-13P-163-1095209-00

PATIENT
  Age: 66 Year
  Sex: Female
  Weight: 88.53 kg

DRUGS (34)
  1. HUMIRA [Suspect]
     Indication: EYE INFLAMMATION
     Dosage: 80 MG EACH DAY
     Dates: start: 20130506, end: 20130507
  2. HUMIRA [Suspect]
     Indication: CROHN^S DISEASE
     Dates: start: 20130521, end: 20130521
  3. HUMIRA [Suspect]
     Dates: start: 20130604
  4. ASACOL [Concomitant]
     Indication: CROHN^S DISEASE
  5. BUDESONIDE [Concomitant]
     Indication: INFLAMMATION
  6. LISINOPRIL [Concomitant]
     Indication: HYPERTENSION
  7. HYDRALAZINE [Concomitant]
     Indication: HYPERTENSION
  8. HYDRALAZINE [Concomitant]
     Indication: HYPERTENSION
  9. NIFEDIPINE XL [Concomitant]
     Indication: HYPERTENSION
  10. NIFEDIPINE XL [Concomitant]
     Indication: PROPHYLAXIS
  11. ATORVASTATIN [Concomitant]
     Indication: BLOOD CHOLESTEROL INCREASED
  12. SYNTHROID [Concomitant]
     Indication: HYPOTHYROIDISM
     Dosage: 25 MCG DAILY
  13. LOPERAMIDE [Concomitant]
     Indication: DIARRHOEA
  14. CYMBALTA [Concomitant]
     Indication: FIBROMYALGIA
  15. ALPRAZOLAM [Concomitant]
     Indication: FIBROMYALGIA
  16. AMBIEN [Concomitant]
     Indication: SLEEP DISORDER THERAPY
     Dosage: AT BETDIME
  17. AMBIEN [Concomitant]
     Indication: PAIN
  18. FLOVENT [Concomitant]
     Indication: HYPERSENSITIVITY
  19. ALBUTEROL [Concomitant]
     Indication: ASTHMA
     Dosage: INHALER
  20. ALBUTEROL [Concomitant]
     Indication: HYPERSENSITIVITY
  21. OMEPRAZOLE [Concomitant]
     Indication: GASTROOESOPHAGEAL REFLUX DISEASE
  22. RESTASIS [Concomitant]
     Indication: DRY EYE
     Dosage: EYE DROPS
  23. DUREZOL [Concomitant]
     Indication: UVEITIS
  24. TIMOLOL [Concomitant]
     Indication: INTRAOCULAR PRESSURE DECREASED
     Dosage: EYE DROPS, 1 DROP LEFT EYE DAILY
  25. TYLENOL [Concomitant]
     Indication: FIBROMYALGIA
     Dosage: WITH XANAX
  26. TYLENOL [Concomitant]
     Indication: PAIN
  27. CORTISONE [Concomitant]
     Indication: PRODUCT USED FOR UNKNOWN INDICATION
     Dosage: EYE DROPS, 1 DROP LEFT EYE TWICE DAILY
  28. SINGULAIR [Concomitant]
     Indication: ASTHMA
  29. SINGULAIR [Concomitant]
     Indication: HYPERSENSITIVITY
  30. DEXILANT [Concomitant]
     Indication: GASTROOESOPHAGEAL REFLUX DISEASE
     Dosage: 60 MG DAILY
  31. DEXILANT [Concomitant]
     Indication: HYPERSENSITIVITY
  32. XANAX [Concomitant]
     Indication: PAIN
  33. PROCARDIA [Concomitant]
     Indication: HYPERTENSION
  34. TRIAMTERENE AND HYDROCHLOROTHIAZID [Concomitant]
     Indication: HYPERTENSION
     Dosage: 37.5/25 MG IN THE MORNING

REACTIONS (11)
  - Eye haemorrhage [Not Recovered/Not Resolved]
  - Rash [Not Recovered/Not Resolved]
  - Therapeutic response unexpected [Not Recovered/Not Resolved]
  - Unevaluable event [Not Recovered/Not Resolved]
  - Unevaluable event [Not Recovered/Not Resolved]
  - Neck pain [Unknown]
  - Intervertebral disc degeneration [Unknown]
  - Miliaria [Recovering/Resolving]
  - Rash erythematous [Not Recovered/Not Resolved]
  - Rash pruritic [Not Recovered/Not Resolved]
  - Purpura [Not Recovered/Not Resolved]
